FAERS Safety Report 17605065 (Version 1)
Quarter: 2020Q1

REPORT INFORMATION
  Report Type: Spontaneous
  Country: US (occurrence: US)
  Receive Date: 20200331
  Receipt Date: 20200331
  Transmission Date: 20200409
  Serious: Yes (Other)
  Sender: FDA-Public Use
  Company Number: None

PATIENT
  Age: 71 Year
  Sex: Male
  Weight: 76.5 kg

DRUGS (1)
  1. OXYCODONE 15MG TAB IMMEDIATE RELIEF [Suspect]
     Active Substance: OXYCODONE
     Indication: PAIN
     Dosage: ?          QUANTITY:240 TABLET(S);?
     Route: 048
     Dates: start: 20200204, end: 20200316

REACTIONS (5)
  - Drug ineffective [None]
  - Dry mouth [None]
  - Abnormal dreams [None]
  - Inadequate analgesia [None]
  - Impaired quality of life [None]

NARRATIVE: CASE EVENT DATE: 20200202
